FAERS Safety Report 5694533-8 (Version None)
Quarter: 2008Q2

REPORT INFORMATION
  Report Type: 
  Country: None (occurrence: None)
  Receive Date: 20080404
  Receipt Date: 20080331
  Transmission Date: 20081010
  Serious: Yes (Hospitalization)
  Sender: FDA-Public Use
  Company Number: FR-ASTRAZENECA-2008AC00568

PATIENT
  Age: 58 Year
  Sex: Female

DRUGS (4)
  1. BUDESONIDE [Suspect]
     Indication: CROHN'S DISEASE
  2. BUDESONIDE [Suspect]
  3. BUDESONIDE [Suspect]
  4. AZATHIOPRINE [Concomitant]

REACTIONS (2)
  - HYPOKALAEMIA [None]
  - METABOLIC ALKALOSIS [None]
